FAERS Safety Report 22641183 (Version 1)
Quarter: 2023Q2

REPORT INFORMATION
  Report Type: Report from Study
  Country: CA (occurrence: CA)
  Receive Date: 20230626
  Receipt Date: 20230626
  Transmission Date: 20230722
  Serious: Yes (Other)
  Sender: FDA-Public Use
  Company Number: CA-BAUSCH-BL-2023-006761

PATIENT
  Age: 61 Year
  Sex: Female

DRUGS (2)
  1. CONTRAVE [Suspect]
     Active Substance: BUPROPION HYDROCHLORIDE\NALTREXONE HYDROCHLORIDE
     Indication: Weight control
     Dosage: 90/8 MG, 1 TAB QAM/1 TAB QPM (WEEK 1)
     Route: 048
     Dates: start: 20230416, end: 20230423
  2. CONTRAVE [Suspect]
     Active Substance: BUPROPION HYDROCHLORIDE\NALTREXONE HYDROCHLORIDE
     Dosage: 90/8 MG, 2 TAB QAM/2 TAB QPM
     Route: 048
     Dates: start: 2023, end: 20230528

REACTIONS (4)
  - Surgery [Unknown]
  - Feeling jittery [Recovered/Resolved]
  - Therapy interrupted [Unknown]
  - Drug titration error [Unknown]

NARRATIVE: CASE EVENT DATE: 20230417
